FAERS Safety Report 12270051 (Version 2)
Quarter: 2016Q2

REPORT INFORMATION
  Report Type: Spontaneous
  Country: FI (occurrence: FI)
  Receive Date: 20160415
  Receipt Date: 20160425
  Transmission Date: 20160815
  Serious: Yes (Death)
  Sender: FDA-Public Use
  Company Number: FI-ROCHE-1742130

PATIENT
  Sex: Male

DRUGS (9)
  1. LANSOPRAZOLE. [Concomitant]
     Active Substance: LANSOPRAZOLE
  2. PRIMASPAN [Concomitant]
     Active Substance: ASPIRIN
  3. ESBRIET [Suspect]
     Active Substance: PIRFENIDONE
     Dosage: 2 CAPSULE 3 TIMES A DAY ON DATES 8-14
     Route: 065
  4. ATENBLOCK [Concomitant]
  5. ESBRIET [Suspect]
     Active Substance: PIRFENIDONE
     Dosage: DAY 15, 3 CAPSULE 3 TIMES A DAY
     Route: 065
  6. ISMOX [Concomitant]
     Active Substance: ISOSORBIDE MONONITRATE
  7. ESBRIET [Suspect]
     Active Substance: PIRFENIDONE
     Indication: IDIOPATHIC PULMONARY FIBROSIS
     Dosage: 1 CAPSULE 3 TIMES A DAY ON DATES 1-7
     Route: 065
     Dates: start: 20151211
  8. CARDACE (FINLAND) [Concomitant]
  9. ROSUVASTATIN. [Concomitant]
     Active Substance: ROSUVASTATIN

REACTIONS (3)
  - Cor pulmonale [Fatal]
  - Cardiac hypertrophy [Fatal]
  - Coronary artery disease [Fatal]
